FAERS Safety Report 7659529-5 (Version None)
Quarter: 2011Q3

REPORT INFORMATION
  Report Type: 
  Country: None (occurrence: None)
  Receive Date: 20110805
  Receipt Date: 20110722
  Transmission Date: 20111222
  Serious: Yes (Hospitalization)
  Sender: FDA-Public Use
  Company Number: GB-MYLANLABS-2011S1015532

PATIENT
  Age: 8 Year
  Sex: Female

DRUGS (4)
  1. VALPROATE SODIUM [Suspect]
  2. VALPROATE SODIUM [Suspect]
     Indication: GRAND MAL CONVULSION
  3. VALPROATE SODIUM [Suspect]
  4. CLONAZEPAM [Concomitant]
     Indication: PRODUCT USED FOR UNKNOWN INDICATION

REACTIONS (3)
  - BONE DENSITY DECREASED [None]
  - FEMUR FRACTURE [None]
  - FANCONI SYNDROME ACQUIRED [None]
